FAERS Safety Report 7571345-1 (Version None)
Quarter: 2011Q2

REPORT INFORMATION
  Report Type: 
  Country: None (occurrence: None)
  Receive Date: 20110624
  Receipt Date: 20110617
  Transmission Date: 20111010
  Serious: Yes (Hospitalization)
  Sender: FDA-Public Use
  Company Number: B0726674A

PATIENT
  Sex: Male

DRUGS (2)
  1. DUTASTERIDE/TAMSULIN HYDROCHLORIDE [Suspect]
     Dosage: 1CAP PER DAY
     Route: 065
     Dates: start: 20110501, end: 20110505
  2. CRESTOR [Concomitant]
     Route: 065
     Dates: start: 20070101

REACTIONS (2)
  - CARDIAC ARREST [None]
  - VENTRICULAR FIBRILLATION [None]
